FAERS Safety Report 18200021 (Version 1)
Quarter: 2020Q3

REPORT INFORMATION
  Report Type: Report from Study
  Country: DE (occurrence: DE)
  Receive Date: 20200827
  Receipt Date: 20200827
  Transmission Date: 20201103
  Serious: Yes (Other)
  Sender: FDA-Public Use
  Company Number: DE-EMD SERONO-9181755

PATIENT
  Age: 53 Year
  Sex: Female

DRUGS (2)
  1. REBIF [Suspect]
     Active Substance: INTERFERON BETA-1A
     Indication: MULTIPLE SCLEROSIS
     Dosage: REBIF THERAPY STARTED FROM 18 YEARS.
     Route: 058
     Dates: start: 2002
  2. REBIF [Suspect]
     Active Substance: INTERFERON BETA-1A
     Route: 058
     Dates: start: 2010

REACTIONS (4)
  - Autoimmune thyroiditis [Unknown]
  - Multiple sclerosis relapse [Not Recovered/Not Resolved]
  - Hypertension [Unknown]
  - Spinal operation [Unknown]
